FAERS Safety Report 4658178-0 (Version None)
Quarter: 2005Q2

REPORT INFORMATION
  Report Type: 
  Country: None (occurrence: None)
  Receive Date: 20050504
  Receipt Date: 20040913
  Transmission Date: 20051028
  Serious: Yes (Other)
  Sender: FDA-Public Use
  Company Number: PHEH2004US09573

PATIENT
  Age: 76 Year
  Sex: Female

DRUGS (5)
  1. DIOVAN HCT [Suspect]
     Indication: HYPERTENSION
     Dosage: ONE TABLET DAILY, ORAL
     Route: 048
     Dates: start: 20040708
  2. AMIODARONE HCL [Suspect]
     Indication: ARRHYTHMIA
     Dosage: 100 MG, QD, ORAL
     Route: 048
  3. ACTONEL [Concomitant]
  4. FIORICET [Concomitant]
  5. CALCIUM (CALCIUM) [Concomitant]

REACTIONS (5)
  - ASTHENIA [None]
  - DIZZINESS [None]
  - FATIGUE [None]
  - HYPOTENSION [None]
  - INSOMNIA [None]
